FAERS Safety Report 17277512 (Version 2)
Quarter: 2020Q2

REPORT INFORMATION
  Report Type: Spontaneous
  Country: US (occurrence: US)
  Receive Date: 20200116
  Receipt Date: 20200407
  Transmission Date: 20200713
  Serious: Yes (Hospitalization, Disabling, Other)
  Sender: FDA-Public Use
  Company Number: US-009507513-1901USA004938

PATIENT
  Sex: Male

DRUGS (9)
  1. INTERFERON BETA-1A [Suspect]
     Active Substance: INTERFERON BETA-1A
     Dosage: 0.5 TABLET, QW
     Dates: start: 1997, end: 2016
  2. ZESTRIL [Suspect]
     Active Substance: LISINOPRIL
     Dosage: 30 MILLIGRAM, QD
     Route: 048
     Dates: end: 2017
  3. PRAVASTATIN. [Concomitant]
     Active Substance: PRAVASTATIN
     Indication: HYPERLIPIDAEMIA
     Dosage: 20 MILLIGRAM
     Dates: start: 201304
  4. ZOSTAVAX [Suspect]
     Active Substance: VARICELLA-ZOSTER VIRUS STRAIN OKA/MERCK LIVE ANTIGEN
     Indication: PROPHYLAXIS
     Route: 065
     Dates: start: 20151009
  5. PRINIVIL [Suspect]
     Active Substance: LISINOPRIL
     Dosage: UNK
     Route: 048
  6. ZESTRIL [Suspect]
     Active Substance: LISINOPRIL
     Dosage: 15 MILLIGRAM (HALF TABLET), QD
     Route: 048
     Dates: start: 2017
  7. COPAXONE [Suspect]
     Active Substance: GLATIRAMER ACETATE
     Indication: MULTIPLE SCLEROSIS
     Dosage: 40 MILLIGRAM MG/ML, 40 MG ON MONDAYS, WEDNESDAY AND FRIDAY
     Route: 058
     Dates: start: 201702
  8. CHLORTHALIDONE. [Suspect]
     Active Substance: CHLORTHALIDONE
     Dosage: 25 MILLIGRAM, QD
     Route: 048
  9. PRINIVIL [Suspect]
     Active Substance: LISINOPRIL
     Dosage: 20 MILLIGRAM, QD
     Route: 048

REACTIONS (43)
  - Acute kidney injury [Recovered/Resolved]
  - Systemic lupus erythematosus [Unknown]
  - Depression [Unknown]
  - Fibromyalgia [Unknown]
  - Gamma-glutamyltransferase increased [Unknown]
  - Gastrointestinal disorder [Unknown]
  - Vision blurred [Unknown]
  - Skin disorder [Unknown]
  - Hypotension [Recovered/Resolved]
  - Hyperhidrosis [Unknown]
  - Muscle relaxant therapy [Unknown]
  - Spinal operation [Unknown]
  - Aspartate aminotransferase increased [Unknown]
  - Dyspepsia [Unknown]
  - Joint effusion [Unknown]
  - Skin papilloma [Unknown]
  - Dehydration [Recovered/Resolved]
  - Abnormal weight gain [Unknown]
  - Rash [Unknown]
  - Arthropathy [Unknown]
  - Constipation [Unknown]
  - Decreased appetite [Unknown]
  - Dysstasia [Unknown]
  - Gait disturbance [Unknown]
  - Hyperaesthesia [Unknown]
  - Hypogonadism [Unknown]
  - Increased tendency to bruise [Unknown]
  - Muscular weakness [Unknown]
  - Night sweats [Unknown]
  - Arthralgia [Unknown]
  - Myalgia [Unknown]
  - Acrochordon [Unknown]
  - Confusional state [Unknown]
  - Hypoaesthesia [Unknown]
  - Actinic keratosis [Unknown]
  - Alanine aminotransferase increased [Unknown]
  - Dry eye [Unknown]
  - Fatigue [Unknown]
  - Paraesthesia [Unknown]
  - Raynaud^s phenomenon [Unknown]
  - Chronic kidney disease [Unknown]
  - Dermatitis [Unknown]
  - Gastrooesophageal reflux disease [Unknown]

NARRATIVE: CASE EVENT DATE: 2015
